FAERS Safety Report 7327949-4 (Version None)
Quarter: 2011Q1

REPORT INFORMATION
  Report Type: 
  Country: None (occurrence: None)
  Receive Date: 20110303
  Receipt Date: 20110302
  Transmission Date: 20110831
  Serious: Yes (Death, Hospitalization)
  Sender: FDA-Public Use
  Company Number: BR-B.I. PHARMACEUTICALS,INC./RIDGEFIELD-2011-BR-00234BR

PATIENT
  Age: 68 Year
  Sex: Female

DRUGS (2)
  1. PRADAXA [Suspect]
     Indication: PROPHYLAXIS
     Dosage: 220 MG
     Route: 048
  2. ANTIHYPERTENSIVES [Concomitant]

REACTIONS (2)
  - PULMONARY EMBOLISM [None]
  - DYSPNOEA [None]
